FAERS Safety Report 4565635-4 (Version None)
Quarter: 2005Q1

REPORT INFORMATION
  Report Type: 
  Country: None (occurrence: None)
  Receive Date: 20050126
  Receipt Date: 20050120
  Transmission Date: 20050727
  Serious: Yes (Other)
  Sender: FDA-Public Use
  Company Number: K200500114

PATIENT
  Age: 68 Year
  Sex: Female
  Weight: 90.7 kg

DRUGS (2)
  1. ALTACE [Suspect]
     Indication: HYPERTENSION
     Dosage: 5 MG, QD, ORAL
     Route: 048
     Dates: start: 20030101
  2. LORAZEPAM [Suspect]
     Indication: INSOMNIA
     Dosage: PRN, BID, ORAL
     Route: 048

REACTIONS (5)
  - CATARACT [None]
  - CONDITION AGGRAVATED [None]
  - HEADACHE [None]
  - MACULAR DEGENERATION [None]
  - OCULAR ICTERUS [None]
